FAERS Safety Report 17624431 (Version 3)
Quarter: 2020Q2

REPORT INFORMATION
  Report Type: Spontaneous
  Country: US (occurrence: US)
  Receive Date: 20200403
  Receipt Date: 20200423
  Transmission Date: 20200713
  Serious: Yes (Other)
  Sender: FDA-Public Use
  Company Number: US-009507513-2004USA001226

PATIENT
  Sex: Male

DRUGS (3)
  1. ZETIA [Suspect]
     Active Substance: EZETIMIBE
     Indication: CORONARY ARTERY DISEASE
     Dosage: 10 MILLIGRAM PER DAY
     Route: 048
     Dates: start: 2017, end: 2019
  2. PREDNISONE. [Suspect]
     Active Substance: PREDNISONE
     Indication: MYALGIA
     Dosage: UNK
  3. LIPITOR [Suspect]
     Active Substance: ATORVASTATIN CALCIUM
     Dosage: UNK

REACTIONS (7)
  - Diarrhoea [Recovered/Resolved]
  - Musculoskeletal disorder [Unknown]
  - Arthralgia [Unknown]
  - Drug-induced liver injury [Unknown]
  - Pain [Unknown]
  - Weight decreased [Unknown]
  - Abdominal discomfort [Unknown]

NARRATIVE: CASE EVENT DATE: 2017
